FAERS Safety Report 4330820-3 (Version None)
Quarter: 2004Q1

REPORT INFORMATION
  Report Type: 
  Country: None (occurrence: None)
  Receive Date: 20040331
  Receipt Date: 20040312
  Transmission Date: 20041129
  Serious: Yes (Other)
  Sender: FDA-Public Use
  Company Number: USA031049195

PATIENT
  Age: 73 Year
  Sex: Female

DRUGS (4)
  1. FORTEO [Suspect]
     Dates: start: 20030301
  2. LIPITOR [Concomitant]
  3. NORVASC [Concomitant]
  4. MOBIC [Concomitant]

REACTIONS (9)
  - ASTHENIA [None]
  - CONDITION AGGRAVATED [None]
  - CONSTIPATION [None]
  - DIZZINESS [None]
  - MEDICATION ERROR [None]
  - MUSCLE CRAMP [None]
  - MUSCULAR WEAKNESS [None]
  - SLUGGISHNESS [None]
  - URINARY INCONTINENCE [None]
